FAERS Safety Report 10159888 (Version 1)
Quarter: 2014Q2

REPORT INFORMATION
  Report Type: Spontaneous
  Country: US (occurrence: US)
  Receive Date: 20140508
  Receipt Date: 20140508
  Transmission Date: 20141212
  Serious: No
  Sender: FDA-Public Use
  Company Number: US-009507513-1405USA004212

PATIENT
  Age: 26 Year
  Sex: Female
  Weight: 77.98 kg

DRUGS (1)
  1. IMPLANON [Suspect]
     Indication: CONTRACEPTION
     Dosage: LEFT ARM
     Route: 059
     Dates: start: 20120521

REACTIONS (2)
  - Body temperature increased [Recovered/Resolved]
  - Menstruation irregular [Unknown]
